FAERS Safety Report 5278275-9 (Version None)
Quarter: 2007Q1

REPORT INFORMATION
  Report Type: 
  Country: None (occurrence: None)
  Receive Date: 20061207
  Receipt Date: 20040325
  Transmission Date: 20070707
  Serious: No
  Sender: FDA-Public Use
  Company Number: 2004UW00008

PATIENT
  Age: 71 Year
  Sex: Male
  Weight: 72.5755 kg

DRUGS (3)
  1. TOPROL-XL [Suspect]
     Indication: CARDIAC FAILURE CONGESTIVE
     Dosage: 50 MG QD PO
     Route: 048
     Dates: start: 20031217
  2. CRESTOR [Concomitant]
  3. XALATAN [Concomitant]

REACTIONS (1)
  - VISION BLURRED [None]
